FAERS Safety Report 23066773 (Version 1)
Quarter: 2023Q4

REPORT INFORMATION
  Report Type: Spontaneous
  Country: GB (occurrence: GB)
  Receive Date: 20231016
  Receipt Date: 20231016
  Transmission Date: 20240109
  Serious: Yes (Other)
  Sender: FDA-Public Use
  Company Number: GB-ABBVIE-5450297

PATIENT
  Sex: Female

DRUGS (2)
  1. LUMIGAN [Suspect]
     Active Substance: BIMATOPROST
     Indication: Glaucoma
     Route: 065
  2. LUMIGAN [Suspect]
     Active Substance: BIMATOPROST
     Indication: Intraocular pressure decreased

REACTIONS (8)
  - Eye operation [Unknown]
  - Illness [Unknown]
  - Dizziness [Unknown]
  - Myalgia [Unknown]
  - Unevaluable event [Unknown]
  - Muscular weakness [Unknown]
  - Fatigue [Unknown]
  - Nausea [Unknown]

NARRATIVE: CASE EVENT DATE: 20230101
